FAERS Safety Report 4855076-4 (Version None)
Quarter: 2005Q4

REPORT INFORMATION
  Report Type: 
  Country: None (occurrence: None)
  Receive Date: 20051125
  Receipt Date: 20050310
  Transmission Date: 20060501
  Serious: Yes (Hospitalization)
  Sender: FDA-Public Use
  Company Number: US-JNJFOC-20041200527

PATIENT
  Age: 76 Year
  Sex: Male
  Weight: 117.9352 kg

DRUGS (17)
  1. LEVAQUIN [Suspect]
     Indication: SKIN INFECTION
     Dosage: 500 MG, ORAL
     Route: 048
     Dates: start: 20041021, end: 20041024
  2. ALLEGRA [Concomitant]
  3. LIPITOR [Concomitant]
  4. GLYBURIDE [Concomitant]
  5. LISINOPRIL [Concomitant]
  6. FUROSEMIDE [Concomitant]
  7. FLOMAX [Concomitant]
  8. NEURONTIN [Concomitant]
  9. VITAMINS (VITAMINS) [Concomitant]
  10. VITAMIN B12 [Concomitant]
  11. NASONEX [Concomitant]
  12. ADVAIR DISKUS 100/50 [Concomitant]
  13. COMBIVENT [Concomitant]
  14. HYTRIN [Concomitant]
  15. ACTOS [Concomitant]
  16. ZYRTEC [Concomitant]
  17. VITAMIN E [Concomitant]

REACTIONS (3)
  - ANGIONEUROTIC OEDEMA [None]
  - BLOOD GLUCOSE INCREASED [None]
  - DYSPNOEA [None]
